FAERS Safety Report 15717473 (Version 1)
Quarter: 2018Q4

REPORT INFORMATION
  Report Type: Spontaneous
  Country: US (occurrence: US)
  Receive Date: 20181129
  Receipt Date: 20181129
  Transmission Date: 20190205
  Serious: No
  Sender: FDA-Public Use
  Company Number: None

PATIENT
  Age: 39 Year
  Sex: Female

DRUGS (1)
  1. ENTYVIO [Suspect]
     Active Substance: VEDOLIZUMAB
     Indication: COLITIS ULCERATIVE
     Dates: start: 201511

REACTIONS (5)
  - Insurance issue [None]
  - Nausea [None]
  - Headache [None]
  - Abdominal pain upper [None]
  - Colitis ulcerative [None]

NARRATIVE: CASE EVENT DATE: 20181101
